FAERS Safety Report 5718393-1 (Version None)
Quarter: 2008Q2

REPORT INFORMATION
  Report Type: 
  Country: None (occurrence: None)
  Receive Date: 20080425
  Receipt Date: 20070912
  Transmission Date: 20081010
  Serious: No
  Sender: FDA-Public Use
  Company Number: A0681465A

PATIENT
  Age: 55 Year
  Sex: Female

DRUGS (5)
  1. DEXEDRINE [Suspect]
     Indication: ATTENTION DEFICIT/HYPERACTIVITY DISORDER
     Dosage: 20MG AS REQUIRED
     Route: 065
  2. ZOLOFT [Concomitant]
  3. PROPANOL [Concomitant]
  4. ATIVAN [Concomitant]
  5. ZYPREXA [Concomitant]

REACTIONS (2)
  - ADVERSE EVENT [None]
  - DRUG INEFFECTIVE [None]
